FAERS Safety Report 6137767-0 (Version None)
Quarter: 2009Q1

REPORT INFORMATION
  Report Type: 
  Country: None (occurrence: None)
  Receive Date: 20090330
  Receipt Date: 20090310
  Transmission Date: 20090719
  Serious: Yes (Death, Hospitalization)
  Sender: FDA-Public Use
  Company Number: 2009US000683

PATIENT
  Age: 68 Year
  Sex: Female
  Weight: 109.8 kg

DRUGS (1)
  1. AMEVIVE [Suspect]
     Indication: PSORIASIS
     Dosage: 15 MG, WEEKLY, INTRAMUSCULAR
     Route: 030
     Dates: start: 20050901

REACTIONS (3)
  - BACTERIAL INFECTION [None]
  - CARDIAC ARREST [None]
  - COLLAPSE OF LUNG [None]
